FAERS Safety Report 24029429 (Version 1)
Quarter: 2024Q2

REPORT INFORMATION
  Report Type: Spontaneous
  Country: US (occurrence: None)
  Receive Date: 20240628
  Receipt Date: 20240628
  Transmission Date: 20240716
  Serious: Yes (Hospitalization)
  Sender: FDA-Public Use
  Company Number: None

PATIENT
  Age: 60 Year
  Sex: Female

DRUGS (1)
  1. HUMIRA [Suspect]
     Active Substance: ADALIMUMAB
     Indication: Crohn^s disease
     Dosage: 40MG EVERY 7 DAYS SUCUTANEOUSLY
     Route: 058
     Dates: start: 201706

REACTIONS (2)
  - Constipation [None]
  - Crohn^s disease [None]

NARRATIVE: CASE EVENT DATE: 20240601
